FAERS Safety Report 19813827 (Version 14)
Quarter: 2025Q1

REPORT INFORMATION
  Report Type: Report from Study
  Country: DE (occurrence: DE)
  Receive Date: 20210909
  Receipt Date: 20250304
  Transmission Date: 20250409
  Serious: Yes (Hospitalization, Other)
  Sender: MYLAN
  Company Number: DE-ROCHE-2288949

PATIENT
  Age: 31 Year
  Sex: Female
  Weight: 99 kg

DRUGS (128)
  1. PREGABALIN [Suspect]
     Active Substance: PREGABALIN
     Indication: Pain
     Dosage: 75 MILLIGRAM, QD
     Route: 048
  2. PREGABALIN [Suspect]
     Active Substance: PREGABALIN
     Dosage: 75 MILLIGRAM, QD
  3. PREGABALIN [Suspect]
     Active Substance: PREGABALIN
     Dosage: 75 MILLIGRAM, QD
  4. PREGABALIN [Suspect]
     Active Substance: PREGABALIN
     Dosage: 75 MILLIGRAM, QD
     Route: 048
  5. PREGABALIN [Suspect]
     Active Substance: PREGABALIN
     Dosage: 150 MILLIGRAM, BID
     Route: 048
  6. PREGABALIN [Suspect]
     Active Substance: PREGABALIN
     Dosage: 150 MILLIGRAM, BID
  7. PREGABALIN [Suspect]
     Active Substance: PREGABALIN
     Dosage: 150 MILLIGRAM, BID
  8. PREGABALIN [Suspect]
     Active Substance: PREGABALIN
     Dosage: 150 MILLIGRAM, BID
     Route: 048
  9. PREGABALIN [Suspect]
     Active Substance: PREGABALIN
     Dosage: 200 MILLIGRAM, BID
  10. PREGABALIN [Suspect]
     Active Substance: PREGABALIN
     Dosage: 200 MILLIGRAM, BID
  11. PREGABALIN [Suspect]
     Active Substance: PREGABALIN
     Dosage: 200 MILLIGRAM, BID
     Route: 048
  12. PREGABALIN [Suspect]
     Active Substance: PREGABALIN
     Dosage: 200 MILLIGRAM, BID
     Route: 048
  13. PREGABALIN [Suspect]
     Active Substance: PREGABALIN
     Dosage: 125 MILLIGRAM, BID
  14. PREGABALIN [Suspect]
     Active Substance: PREGABALIN
     Dosage: 125 MILLIGRAM, BID
  15. PREGABALIN [Suspect]
     Active Substance: PREGABALIN
     Dosage: 125 MILLIGRAM, BID
     Route: 048
  16. PREGABALIN [Suspect]
     Active Substance: PREGABALIN
     Dosage: 125 MILLIGRAM, BID
     Route: 048
  17. OCREVUS [Suspect]
     Active Substance: OCRELIZUMAB
     Indication: Relapsing-remitting multiple sclerosis
     Route: 042
  18. OCREVUS [Suspect]
     Active Substance: OCRELIZUMAB
     Indication: Secondary progressive multiple sclerosis
     Route: 042
  19. OCREVUS [Suspect]
     Active Substance: OCRELIZUMAB
  20. OCREVUS [Suspect]
     Active Substance: OCRELIZUMAB
  21. OCREVUS [Suspect]
     Active Substance: OCRELIZUMAB
     Route: 042
  22. OCREVUS [Suspect]
     Active Substance: OCRELIZUMAB
     Route: 042
  23. OCREVUS [Suspect]
     Active Substance: OCRELIZUMAB
  24. OCREVUS [Suspect]
     Active Substance: OCRELIZUMAB
  25. OCREVUS [Suspect]
     Active Substance: OCRELIZUMAB
  26. OCREVUS [Suspect]
     Active Substance: OCRELIZUMAB
     Route: 042
  27. OCREVUS [Suspect]
     Active Substance: OCRELIZUMAB
     Route: 042
  28. OCREVUS [Suspect]
     Active Substance: OCRELIZUMAB
  29. OCREVUS [Suspect]
     Active Substance: OCRELIZUMAB
  30. OCREVUS [Suspect]
     Active Substance: OCRELIZUMAB
  31. OCREVUS [Suspect]
     Active Substance: OCRELIZUMAB
     Route: 042
  32. OCREVUS [Suspect]
     Active Substance: OCRELIZUMAB
     Route: 042
  33. OCREVUS [Suspect]
     Active Substance: OCRELIZUMAB
     Dosage: 600 MILLIGRAM (1 IN 186 DAYS)
     Dates: start: 20200331, end: 20200331
  34. OCREVUS [Suspect]
     Active Substance: OCRELIZUMAB
     Dosage: 600 MILLIGRAM (1 IN 186 DAYS)
     Route: 042
     Dates: start: 20200331, end: 20200331
  35. OCREVUS [Suspect]
     Active Substance: OCRELIZUMAB
     Dosage: 600 MILLIGRAM (1 IN 186 DAYS)
     Route: 042
     Dates: start: 20200331, end: 20200331
  36. OCREVUS [Suspect]
     Active Substance: OCRELIZUMAB
     Dosage: 600 MILLIGRAM (1 IN 186 DAYS)
     Dates: start: 20200331, end: 20200331
  37. AMITRIPTYLINE HYDROCHLORIDE [Suspect]
     Active Substance: AMITRIPTYLINE HYDROCHLORIDE
     Indication: Depression
     Dosage: 25 MILLIGRAM, QD, NIGHT
  38. AMITRIPTYLINE HYDROCHLORIDE [Suspect]
     Active Substance: AMITRIPTYLINE HYDROCHLORIDE
     Dosage: 25 MILLIGRAM, QD, NIGHT
     Route: 048
  39. AMITRIPTYLINE HYDROCHLORIDE [Suspect]
     Active Substance: AMITRIPTYLINE HYDROCHLORIDE
     Dosage: 25 MILLIGRAM, QD, NIGHT
     Route: 048
  40. AMITRIPTYLINE HYDROCHLORIDE [Suspect]
     Active Substance: AMITRIPTYLINE HYDROCHLORIDE
     Dosage: 25 MILLIGRAM, QD, NIGHT
  41. BACLOFEN [Suspect]
     Active Substance: BACLOFEN
     Indication: Ataxia
     Dosage: 10 MILLIGRAM, TID, 0.33 DAYS (2-2-2)
     Route: 048
     Dates: start: 20190927
  42. BACLOFEN [Suspect]
     Active Substance: BACLOFEN
     Dosage: 10 MILLIGRAM, TID, 0.33 DAYS (2-2-2)
     Dates: start: 20190927
  43. BACLOFEN [Suspect]
     Active Substance: BACLOFEN
     Dosage: 10 MILLIGRAM, TID, 0.33 DAYS (2-2-2)
     Dates: start: 20190927
  44. BACLOFEN [Suspect]
     Active Substance: BACLOFEN
     Dosage: 10 MILLIGRAM, TID, 0.33 DAYS (2-2-2)
     Route: 048
     Dates: start: 20190927
  45. BACLOFEN [Suspect]
     Active Substance: BACLOFEN
     Dosage: 10 MILLIGRAM, TID
     Route: 048
     Dates: start: 20190927
  46. BACLOFEN [Suspect]
     Active Substance: BACLOFEN
     Dosage: 10 MILLIGRAM, TID
     Route: 048
     Dates: start: 20190927
  47. BACLOFEN [Suspect]
     Active Substance: BACLOFEN
     Dosage: 10 MILLIGRAM, TID
     Dates: start: 20190927
  48. BACLOFEN [Suspect]
     Active Substance: BACLOFEN
     Dosage: 10 MILLIGRAM, TID
     Dates: start: 20190927
  49. BACLOFEN [Suspect]
     Active Substance: BACLOFEN
     Route: 065
  50. BACLOFEN [Suspect]
     Active Substance: BACLOFEN
     Route: 065
  51. BACLOFEN [Suspect]
     Active Substance: BACLOFEN
  52. BACLOFEN [Suspect]
     Active Substance: BACLOFEN
  53. BACLOFEN [Suspect]
     Active Substance: BACLOFEN
  54. BACLOFEN [Suspect]
     Active Substance: BACLOFEN
  55. BACLOFEN [Suspect]
     Active Substance: BACLOFEN
     Route: 065
  56. BACLOFEN [Suspect]
     Active Substance: BACLOFEN
     Route: 065
  57. BACLOFEN [Suspect]
     Active Substance: BACLOFEN
     Dosage: 10 MILLIGRAM, TID, (2-2-2)
     Route: 065
  58. BACLOFEN [Suspect]
     Active Substance: BACLOFEN
     Dosage: 10 MILLIGRAM, TID, (2-2-2)
     Route: 065
  59. BACLOFEN [Suspect]
     Active Substance: BACLOFEN
     Dosage: 10 MILLIGRAM, TID, (2-2-2)
  60. BACLOFEN [Suspect]
     Active Substance: BACLOFEN
     Dosage: 10 MILLIGRAM, TID, (2-2-2)
  61. BACLOFEN [Suspect]
     Active Substance: BACLOFEN
     Route: 065
  62. BACLOFEN [Suspect]
     Active Substance: BACLOFEN
  63. BACLOFEN [Suspect]
     Active Substance: BACLOFEN
  64. BACLOFEN [Suspect]
     Active Substance: BACLOFEN
     Route: 065
  65. BACLOFEN [Suspect]
     Active Substance: BACLOFEN
     Route: 065
  66. BACLOFEN [Suspect]
     Active Substance: BACLOFEN
     Route: 065
  67. BACLOFEN [Suspect]
     Active Substance: BACLOFEN
  68. BACLOFEN [Suspect]
     Active Substance: BACLOFEN
  69. BACLOFEN [Suspect]
     Active Substance: BACLOFEN
  70. BACLOFEN [Suspect]
     Active Substance: BACLOFEN
  71. BACLOFEN [Suspect]
     Active Substance: BACLOFEN
     Route: 065
  72. BACLOFEN [Suspect]
     Active Substance: BACLOFEN
     Route: 065
  73. CORTISONE [Suspect]
     Active Substance: CORTISONE
     Indication: Multiple sclerosis relapse
  74. CORTISONE [Suspect]
     Active Substance: CORTISONE
     Route: 042
  75. CORTISONE [Suspect]
     Active Substance: CORTISONE
     Route: 042
  76. CORTISONE [Suspect]
     Active Substance: CORTISONE
  77. NABIXIMOLS [Suspect]
     Active Substance: NABIXIMOLS
     Indication: Neuralgia
  78. NABIXIMOLS [Suspect]
     Active Substance: NABIXIMOLS
     Indication: Muscle spasticity
  79. NABIXIMOLS [Suspect]
     Active Substance: NABIXIMOLS
     Route: 065
  80. NABIXIMOLS [Suspect]
     Active Substance: NABIXIMOLS
     Route: 065
  81. NABIXIMOLS [Suspect]
     Active Substance: NABIXIMOLS
  82. NABIXIMOLS [Suspect]
     Active Substance: NABIXIMOLS
  83. NABIXIMOLS [Suspect]
     Active Substance: NABIXIMOLS
     Route: 065
  84. NABIXIMOLS [Suspect]
     Active Substance: NABIXIMOLS
     Route: 065
  85. PANTOZOL [Concomitant]
     Active Substance: PANTOPRAZOLE SODIUM
     Indication: Gastrointestinal disorder prophylaxis
     Dosage: 40 MILLIGRAM, QD
  86. PANTOZOL [Concomitant]
     Active Substance: PANTOPRAZOLE SODIUM
     Dosage: 40 MILLIGRAM, QD
     Route: 048
  87. PANTOZOL [Concomitant]
     Active Substance: PANTOPRAZOLE SODIUM
     Dosage: 40 MILLIGRAM, QD
     Route: 048
  88. PANTOZOL [Concomitant]
     Active Substance: PANTOPRAZOLE SODIUM
     Dosage: 40 MILLIGRAM, QD
  89. CANDESARTAN [Concomitant]
     Active Substance: CANDESARTAN
     Indication: Hypertension
     Dosage: 8 MILLIGRAM, QD (1-0-0)
     Dates: start: 20190927
  90. CANDESARTAN [Concomitant]
     Active Substance: CANDESARTAN
     Dosage: 8 MILLIGRAM, QD (1-0-0)
     Route: 048
     Dates: start: 20190927
  91. CANDESARTAN [Concomitant]
     Active Substance: CANDESARTAN
     Dosage: 8 MILLIGRAM, QD (1-0-0)
     Route: 048
     Dates: start: 20190927
  92. CANDESARTAN [Concomitant]
     Active Substance: CANDESARTAN
     Dosage: 8 MILLIGRAM, QD (1-0-0)
     Dates: start: 20190927
  93. Novalgin [Concomitant]
     Indication: Pain
  94. Novalgin [Concomitant]
     Route: 048
  95. Novalgin [Concomitant]
     Route: 048
  96. Novalgin [Concomitant]
  97. AMANTADINE [Concomitant]
     Active Substance: AMANTADINE
     Indication: Fatigue
     Dosage: 100 MILLIGRAM, BID, (1-1-0)
  98. AMANTADINE [Concomitant]
     Active Substance: AMANTADINE
     Dosage: 100 MILLIGRAM, BID, (1-1-0)
     Route: 048
  99. AMANTADINE [Concomitant]
     Active Substance: AMANTADINE
     Dosage: 100 MILLIGRAM, BID, (1-1-0)
     Route: 048
  100. AMANTADINE [Concomitant]
     Active Substance: AMANTADINE
     Dosage: 100 MILLIGRAM, BID, (1-1-0)
  101. AMLODIPINE [Concomitant]
     Active Substance: AMLODIPINE BESYLATE
     Indication: Hypertension
     Dosage: 5 MILLIGRAM, QD
  102. AMLODIPINE [Concomitant]
     Active Substance: AMLODIPINE BESYLATE
     Dosage: 5 MILLIGRAM, QD
     Route: 048
  103. AMLODIPINE [Concomitant]
     Active Substance: AMLODIPINE BESYLATE
     Dosage: 5 MILLIGRAM, QD
     Route: 048
  104. AMLODIPINE [Concomitant]
     Active Substance: AMLODIPINE BESYLATE
     Dosage: 5 MILLIGRAM, QD
  105. SYMBICORT [Concomitant]
     Active Substance: BUDESONIDE\FORMOTEROL FUMARATE DIHYDRATE
     Indication: Product used for unknown indication
     Dosage: 0.5 PER DAY, TURBOHALER 2 SPRAYS (1-0-1)
  106. SYMBICORT [Concomitant]
     Active Substance: BUDESONIDE\FORMOTEROL FUMARATE DIHYDRATE
     Dosage: 0.5 PER DAY, TURBOHALER 2 SPRAYS (1-0-1)
  107. SYMBICORT [Concomitant]
     Active Substance: BUDESONIDE\FORMOTEROL FUMARATE DIHYDRATE
     Dosage: 0.5 PER DAY, TURBOHALER 2 SPRAYS (1-0-1)
     Route: 065
  108. SYMBICORT [Concomitant]
     Active Substance: BUDESONIDE\FORMOTEROL FUMARATE DIHYDRATE
     Dosage: 0.5 PER DAY, TURBOHALER 2 SPRAYS (1-0-1)
     Route: 065
  109. SYMBICORT [Concomitant]
     Active Substance: BUDESONIDE\FORMOTEROL FUMARATE DIHYDRATE
  110. SYMBICORT [Concomitant]
     Active Substance: BUDESONIDE\FORMOTEROL FUMARATE DIHYDRATE
  111. SYMBICORT [Concomitant]
     Active Substance: BUDESONIDE\FORMOTEROL FUMARATE DIHYDRATE
     Route: 065
  112. SYMBICORT [Concomitant]
     Active Substance: BUDESONIDE\FORMOTEROL FUMARATE DIHYDRATE
     Route: 065
  113. POLYETHYLENE GLYCOLS [Concomitant]
     Active Substance: POLYETHYLENE GLYCOLS
     Indication: Product used for unknown indication
  114. POLYETHYLENE GLYCOLS [Concomitant]
     Active Substance: POLYETHYLENE GLYCOLS
  115. POLYETHYLENE GLYCOLS [Concomitant]
     Active Substance: POLYETHYLENE GLYCOLS
     Route: 065
  116. POLYETHYLENE GLYCOLS [Concomitant]
     Active Substance: POLYETHYLENE GLYCOLS
     Route: 065
  117. POLYETHYLENE GLYCOLS [Concomitant]
     Active Substance: POLYETHYLENE GLYCOLS
  118. POLYETHYLENE GLYCOLS [Concomitant]
     Active Substance: POLYETHYLENE GLYCOLS
  119. POLYETHYLENE GLYCOLS [Concomitant]
     Active Substance: POLYETHYLENE GLYCOLS
     Route: 065
  120. POLYETHYLENE GLYCOLS [Concomitant]
     Active Substance: POLYETHYLENE GLYCOLS
     Route: 065
  121. SALBUHEXAL [Concomitant]
     Active Substance: ALBUTEROL
     Indication: Product used for unknown indication
     Dosage: UNK, QD, DOSE: 4 X 1 SPRAY DAILY
  122. SALBUHEXAL [Concomitant]
     Active Substance: ALBUTEROL
     Dosage: UNK, QD, DOSE: 4 X 1 SPRAY DAILY
  123. SALBUHEXAL [Concomitant]
     Active Substance: ALBUTEROL
     Dosage: UNK, QD, DOSE: 4 X 1 SPRAY DAILY
     Route: 065
  124. SALBUHEXAL [Concomitant]
     Active Substance: ALBUTEROL
     Dosage: UNK, QD, DOSE: 4 X 1 SPRAY DAILY
     Route: 065
  125. SALBUHEXAL [Concomitant]
     Active Substance: ALBUTEROL
  126. SALBUHEXAL [Concomitant]
     Active Substance: ALBUTEROL
  127. SALBUHEXAL [Concomitant]
     Active Substance: ALBUTEROL
     Route: 065
  128. SALBUHEXAL [Concomitant]
     Active Substance: ALBUTEROL
     Route: 065

REACTIONS (24)
  - Multiple sclerosis relapse [Recovered/Resolved]
  - Depression [Recovering/Resolving]
  - Drug abuse [Unknown]
  - Oropharyngeal pain [Recovered/Resolved]
  - Asthma [Unknown]
  - Tension [Recovering/Resolving]
  - Bronchitis [Recovered/Resolved]
  - Blood immunoglobulin G decreased [Not Recovered/Not Resolved]
  - Sleep disorder [Recovered/Resolved]
  - Neuralgia [Not Recovered/Not Resolved]
  - Alopecia [Recovered/Resolved]
  - Stomatitis [Recovered/Resolved]
  - Cough [Not Recovered/Not Resolved]
  - Heart rate increased [Recovered/Resolved]
  - Breast mass [Recovered/Resolved]
  - Weight increased [Recovering/Resolving]
  - Muscle spasticity [Not Recovered/Not Resolved]
  - Pain [Recovered/Resolved]
  - Fall [Unknown]
  - Gait disturbance [Not Recovered/Not Resolved]
  - Agitation [Recovering/Resolving]
  - Fatigue [Recovered/Resolved]
  - Intentional product use issue [Unknown]
  - Off label use [Unknown]

NARRATIVE: CASE EVENT DATE: 20190115
